FAERS Safety Report 25641656 (Version 1)
Quarter: 2025Q3

REPORT INFORMATION
  Report Type: Report from Study
  Country: US (occurrence: US)
  Receive Date: 20250804
  Receipt Date: 20250804
  Transmission Date: 20251021
  Serious: Yes (Hospitalization)
  Sender: NOVARTIS
  Company Number: US-002147023-NVSC2025US122208

PATIENT
  Age: 55 Year
  Sex: Female

DRUGS (1)
  1. MAYZENT [Suspect]
     Active Substance: SIPONIMOD
     Indication: Relapsing multiple sclerosis
     Dosage: 2 MG, QD
     Route: 048

REACTIONS (2)
  - Hypoacusis [Unknown]
  - Brain fog [Unknown]

NARRATIVE: CASE EVENT DATE: 20250730
